FAERS Safety Report 4413108-1 (Version None)
Quarter: 2004Q3

REPORT INFORMATION
  Report Type: 
  Country: None (occurrence: None)
  Receive Date: 20040727
  Receipt Date: 20040715
  Transmission Date: 20050211
  Serious: Yes (Other)
  Sender: FDA-Public Use
  Company Number: 2004224006US

PATIENT
  Age: 18 Year
  Sex: Female
  Weight: 72.6 kg

DRUGS (2)
  1. DEPO-PROVERA [Suspect]
     Indication: CONTRACEPTION
     Dosage: SEE IMAGE
     Dates: start: 20030801, end: 20030801
  2. DEPO-PROVERA [Suspect]
     Indication: CONTRACEPTION
     Dosage: SEE IMAGE
     Dates: start: 20040608, end: 20040608

REACTIONS (4)
  - AMENORRHOEA [None]
  - METRORRHAGIA [None]
  - UTERINE CYST [None]
  - WEIGHT INCREASED [None]
